FAERS Safety Report 9338543 (Version 2)
Quarter: 2013Q3

REPORT INFORMATION
  Report Type: Spontaneous
  Country: US (occurrence: US)
  Receive Date: 20130610
  Receipt Date: 20130813
  Transmission Date: 20140515
  Serious: No
  Sender: FDA-Public Use
  Company Number: US-PFIZER INC-2013174235

PATIENT
  Age: 51 Year
  Sex: Female
  Weight: 58.96 kg

DRUGS (2)
  1. PRISTIQ [Suspect]
     Indication: DEPRESSION
     Dosage: 100 MG, DAILY
  2. ADDERALL [Concomitant]
     Indication: ATTENTION DEFICIT/HYPERACTIVITY DISORDER
     Dosage: ^10MG^ THREE TO FOUR TIMES A DAY

REACTIONS (3)
  - Drug effect incomplete [Unknown]
  - Anxiety [Unknown]
  - Memory impairment [Unknown]
